FAERS Safety Report 8935377 (Version 1)
Quarter: 2012Q4

REPORT INFORMATION
  Report Type: Spontaneous
  Country: US (occurrence: None)
  Receive Date: 20121127
  Receipt Date: 20121127
  Transmission Date: 20130627
  Serious: No
  Sender: FDA-Public Use
  Company Number: None

PATIENT
  Age: 34 Year
  Sex: Female
  Weight: 56.25 kg

DRUGS (1)
  1. VALACYCLOVIR [Suspect]
     Indication: FEVER BLISTER
     Dosage: 1 to 2 tablets po
     Route: 048
     Dates: start: 20121102, end: 20121120

REACTIONS (2)
  - Drug ineffective [None]
  - Product substitution issue [None]
